FAERS Safety Report 6240082-8 (Version None)
Quarter: 2009Q2

REPORT INFORMATION
  Report Type: 
  Country: None (occurrence: None)
  Receive Date: 20090618
  Receipt Date: 20090618
  Transmission Date: 20091009
  Serious: No
  Sender: FDA-Public Use
  Company Number: None

PATIENT
  Sex: Female
  Weight: 68.0396 kg

DRUGS (3)
  1. ZICAM NASAL SPRAY ?? [Suspect]
     Indication: INFLUENZA IMMUNISATION
     Dosage: ONE SPRAY ONCE DAILY NASAL
     Route: 045
     Dates: start: 19980101, end: 19990102
  2. ZICAM NASAL SPRAY ?? [Suspect]
     Indication: NASOPHARYNGITIS
     Dosage: ONE SPRAY ONCE DAILY NASAL
     Route: 045
     Dates: start: 19980101, end: 19990102
  3. ZICAM NASAL SPRAY ?? [Suspect]
     Indication: PROPHYLAXIS
     Dosage: ONE SPRAY ONCE DAILY NASAL
     Route: 045
     Dates: start: 19980101, end: 19990102

REACTIONS (2)
  - ANOSMIA [None]
  - HYPOGEUSIA [None]
